FAERS Safety Report 7903790-6 (Version None)
Quarter: 2011Q4

REPORT INFORMATION
  Report Type: 
  Country: None (occurrence: None)
  Receive Date: 20111109
  Receipt Date: 20111104
  Transmission Date: 20120403
  Serious: Yes (Life-Threatening, Hospitalization, Other)
  Sender: FDA-Public Use
  Company Number: US-ASTRAZENECA-2009UW00773

PATIENT
  Age: 56 Year
  Sex: Female
  Weight: 90.7 kg

DRUGS (11)
  1. SEROQUEL [Suspect]
     Indication: BIPOLAR I DISORDER
     Route: 048
     Dates: start: 20060101
  2. SEROQUEL [Suspect]
     Indication: SCHIZOPHRENIA
     Route: 048
     Dates: start: 20060101
  3. POTASSIUM [Concomitant]
  4. MAXZIDE [Concomitant]
  5. CELEBREX [Concomitant]
  6. ZOCOR [Concomitant]
  7. SEROQUEL [Suspect]
     Route: 048
  8. CELEXA [Concomitant]
  9. PREVACID [Concomitant]
  10. LEVOTHYROXINE SODIUM [Concomitant]
  11. SEROQUEL [Suspect]
     Route: 048

REACTIONS (12)
  - HEADACHE [None]
  - ADVERSE DRUG REACTION [None]
  - TREMOR [None]
  - CONVULSION [None]
  - INCORRECT DOSE ADMINISTERED [None]
  - WITHDRAWAL SYNDROME [None]
  - ABNORMAL BEHAVIOUR [None]
  - FATIGUE [None]
  - HYPERSOMNIA [None]
  - STRESS [None]
  - CRYING [None]
  - DRUG DOSE OMISSION [None]
